FAERS Safety Report 4392583-5 (Version None)
Quarter: 2004Q3

REPORT INFORMATION
  Report Type: 
  Country: None (occurrence: None)
  Receive Date: 20040702
  Receipt Date: 20040301
  Transmission Date: 20050211
  Serious: Yes (Other)
  Sender: FDA-Public Use
  Company Number: 2004UW03715

PATIENT
  Age: 76 Year
  Sex: Female
  Weight: 55.3388 kg

DRUGS (3)
  1. CRESTOR [Suspect]
     Indication: HYPERCHOLESTEROLAEMIA
     Dosage: 10 MG QD PO
     Route: 048
  2. ASPIRIN [Concomitant]
  3. PROPRANOLOL [Concomitant]

REACTIONS (4)
  - COUGH [None]
  - EYE PRURITUS [None]
  - NASAL CONGESTION [None]
  - RHINORRHOEA [None]
